FAERS Safety Report 5294595-6 (Version None)
Quarter: 2007Q2

REPORT INFORMATION
  Report Type: 
  Country: None (occurrence: None)
  Receive Date: 20070412
  Receipt Date: 20070403
  Transmission Date: 20071010
  Serious: Yes (Death)
  Sender: FDA-Public Use
  Company Number: AU-GENENTECH-239526

PATIENT
  Age: 52 Year
  Sex: Female

DRUGS (4)
  1. MABTHERA [Suspect]
     Indication: MALIGNANT LYMPHOID NEOPLASM
  2. CYCLOPHOSPHAMIDE [Suspect]
     Indication: MALIGNANT LYMPHOID NEOPLASM
     Route: 042
  3. FLUDARABINE PHOSPHATE [Suspect]
     Indication: MALIGNANT LYMPHOID NEOPLASM
  4. MITOXANTRONE [Suspect]
     Indication: MALIGNANT LYMPHOID NEOPLASM

REACTIONS (1)
  - MYELODYSPLASTIC SYNDROME [None]
